FAERS Safety Report 8843344 (Version 1)
Quarter: 2012Q4

REPORT INFORMATION
  Report Type: 
  Country: US (occurrence: US)
  Receive Date: 20121016
  Receipt Date: 20121016
  Transmission Date: 20130627
  Serious: No
  Sender: FDA-Public Use
  Company Number: US-VERTEX PHARMACEUTICAL INC.-2012-022641

PATIENT
  Age: 53 Year
  Sex: Female

DRUGS (3)
  1. INCIVEK [Suspect]
     Indication: HEPATITIS C
     Dosage: UNK
     Route: 048
     Dates: end: 201207
  2. RIBAVIRIN [Suspect]
     Indication: HEPATITIS C
     Dosage: UNK UNK, bid
  3. PEGINTERFERON ALFA [Suspect]
     Indication: HEPATITIS C
     Dosage: UNK

REACTIONS (10)
  - Dyspnoea [Unknown]
  - Dizziness [Unknown]
  - Memory impairment [Unknown]
  - Weight increased [Unknown]
  - Stomatitis [Unknown]
  - Alopecia [Unknown]
  - Pallor [Unknown]
  - Rash [Unknown]
  - Anaemia [Unknown]
  - Anorectal discomfort [Unknown]
